FAERS Safety Report 25735476 (Version 1)
Quarter: 2025Q3

REPORT INFORMATION
  Report Type: Report from Study
  Country: US (occurrence: US)
  Receive Date: 20250828
  Receipt Date: 20250828
  Transmission Date: 20251021
  Serious: Yes (Other)
  Sender: ABBVIE
  Company Number: US-ABBVIE-6432383

PATIENT
  Age: 63 Year
  Sex: Female

DRUGS (1)
  1. SYNTHROID [Suspect]
     Active Substance: LEVOTHYROXINE SODIUM
     Indication: Thyroidectomy
     Route: 048
     Dates: start: 2005

REACTIONS (7)
  - Cerebrovascular accident [Unknown]
  - Cerebrovascular accident [Recovered/Resolved]
  - Vertigo [Unknown]
  - Vomiting [Unknown]
  - Atrial fibrillation [Unknown]
  - Cerebrovascular accident [Recovered/Resolved]
  - Diabetes mellitus [Unknown]

NARRATIVE: CASE EVENT DATE: 20171224
